FAERS Safety Report 4298885-5 (Version None)
Quarter: 2004Q1

REPORT INFORMATION
  Report Type: 
  Country: None (occurrence: None)
  Receive Date: 20040126
  Receipt Date: 20031110
  Transmission Date: 20041129
  Serious: No
  Sender: FDA-Public Use
  Company Number: USA031152117

PATIENT
  Age: 6 Year
  Sex: Male

DRUGS (2)
  1. STRATTERA [Suspect]
     Dosage: 60 MG/DAY
     Dates: start: 20031001
  2. CONCERTA [Concomitant]

REACTIONS (4)
  - DECREASED APPETITE [None]
  - DRUG INEFFECTIVE [None]
  - PRESCRIBED OVERDOSE [None]
  - WEIGHT DECREASED [None]
